FAERS Safety Report 9148507 (Version 1)
Quarter: 2013Q1

REPORT INFORMATION
  Report Type: Spontaneous
  Country: FR (occurrence: None)
  Receive Date: 20130204
  Receipt Date: 20130204
  Transmission Date: 20140127
  Serious: Yes (Death, Hospitalization)
  Sender: FDA-Public Use
  Company Number: 2013000010

PATIENT
  Age: 87 Year
  Sex: Male

DRUGS (10)
  1. ACEON (PERINDOPRIL ERBUMINE) TABLET [Suspect]
     Indication: PRODUCT USED FOR UNKNOWN INDICATION
     Route: 048
     Dates: start: 20121217, end: 20121221
  2. LASILIX [Suspect]
     Indication: PRODUCT USED FOR UNKNOWN INDICATION
     Dates: start: 20121218
  3. ESIDREX [Suspect]
     Indication: PRODUCT USED FOR UNKNOWN INDICATION
     Route: 048
     Dates: start: 20121202, end: 20121221
  4. CORDARONE (AMIODARONE HYDROCHLORIDE) [Concomitant]
  5. TAHOR (ATORVASTATIN CALCIUM) [Concomitant]
  6. LEVOTHYROX (LEVOTHYROXINE SODIUM) INFUSION [Concomitant]
  7. XAFRAL (ALFUZOSIN HYDROCHLORIDE) [Concomitant]
  8. AVODART (DUTASTERIDE) [Concomitant]
  9. PREVISCAN (FLUINDIONE) [Concomitant]
  10. DIFFU K [Concomitant]

REACTIONS (11)
  - Cardiogenic shock [None]
  - Anuria [None]
  - Renal failure [None]
  - International normalised ratio increased [None]
  - Hypotension [None]
  - Vertigo [None]
  - Body temperature decreased [None]
  - Right ventricular failure [None]
  - Hepatic pain [None]
  - Confusional state [None]
  - Haemorrhage [None]
